FAERS Safety Report 25208990 (Version 1)
Quarter: 2025Q2

REPORT INFORMATION
  Report Type: Spontaneous
  Country: US (occurrence: US)
  Receive Date: 20250417
  Receipt Date: 20250417
  Transmission Date: 20250716
  Serious: Yes (Other)
  Sender: BRISTOL MYERS SQUIBB
  Company Number: US-BRISTOL-MYERS SQUIBB COMPANY-2025-052622

PATIENT
  Age: 74 Year
  Sex: Female

DRUGS (4)
  1. ELIQUIS [Suspect]
     Active Substance: APIXABAN
     Indication: Atrial fibrillation
     Dosage: ONE PILL TWICE A DAY
     Route: 048
  2. CYMBALTA [Concomitant]
     Active Substance: DULOXETINE HYDROCHLORIDE
     Indication: Product used for unknown indication
  3. TRAZODONE [Concomitant]
     Active Substance: TRAZODONE HYDROCHLORIDE
     Indication: Product used for unknown indication
  4. VALIUM [Concomitant]
     Active Substance: DIAZEPAM
     Indication: Product used for unknown indication

REACTIONS (7)
  - Vision blurred [Unknown]
  - Respiratory syncytial virus infection [Not Recovered/Not Resolved]
  - Pneumonia [Not Recovered/Not Resolved]
  - Pyrexia [Unknown]
  - Aortic valve disease [Unknown]
  - Migraine [Unknown]
  - Dizziness [Unknown]

NARRATIVE: CASE EVENT DATE: 20250301
